FAERS Safety Report 6586086-7 (Version None)
Quarter: 2010Q1

REPORT INFORMATION
  Report Type: 
  Country: None (occurrence: None)
  Receive Date: 20100216
  Receipt Date: 20100216
  Transmission Date: 20100710
  Serious: No
  Sender: FDA-Public Use
  Company Number: None

PATIENT
  Age: 77 Year
  Sex: Male
  Weight: 74.8 kg

DRUGS (2)
  1. LISINOPRIL [Suspect]
     Indication: HYPERTENSION
     Dosage: 2.5 MG EVERYDAY PO
     Route: 048
     Dates: start: 20100120, end: 20100214
  2. LEVOFLOXACIN [Suspect]
     Indication: URINARY TRACT INFECTION
     Dosage: 500 MG EVERYDAY IV
     Route: 042
     Dates: start: 20100128, end: 20100201

REACTIONS (1)
  - ANGIOEDEMA [None]
